APPROVED DRUG PRODUCT: ABILIFY ASIMTUFII
Active Ingredient: ARIPIPRAZOLE
Strength: 960MG/3.2ML (300MG/ML)
Dosage Form/Route: SUSPENSION, EXTENDED RELEASE;INTRAMUSCULAR
Application: N217006 | Product #002
Applicant: OTSUKA PHARMACEUTICAL CO LTD
Approved: Apr 27, 2023 | RLD: Yes | RS: Yes | Type: RX

PATENTS:
Patent 12016927 | Expires: Apr 23, 2033
Patent 12016927 | Expires: Apr 23, 2033
Patent 11638757 | Expires: Apr 23, 2033
Patent 11638757 | Expires: Apr 23, 2033
Patent 11097007 | Expires: Apr 23, 2033
Patent 11097007 | Expires: Apr 23, 2033
Patent 10517951 | Expires: Apr 23, 2033
Patent 10517951 | Expires: Apr 23, 2033